FAERS Safety Report 22203849 (Version 1)
Quarter: 2023Q2

REPORT INFORMATION
  Report Type: Spontaneous
  Country: NL (occurrence: NL)
  Receive Date: 20230412
  Receipt Date: 20230412
  Transmission Date: 20230722
  Serious: Yes (Hospitalization)
  Sender: FDA-Public Use
  Company Number: None

PATIENT
  Sex: Male
  Weight: 80 kg

DRUGS (3)
  1. LENALIDOMIDE [Suspect]
     Active Substance: LENALIDOMIDE
     Indication: Plasma cell myeloma
     Dosage: 1X PER DAY 1 PIECE
     Route: 065
     Dates: start: 20230301, end: 20230315
  2. DARATUMUMAB [Concomitant]
     Active Substance: DARATUMUMAB
     Dosage: 120 MG/ML (MILLIGRAMS PER MILLILITRE) INJECTION
     Route: 065
  3. BORTEZOMIB [Concomitant]
     Active Substance: BORTEZOMIB
     Dosage: 1 MG/MG (MILLIGRAMS PER MILLIGRAM)
     Route: 065

REACTIONS (1)
  - Vasculitis [Recovering/Resolving]
